FAERS Safety Report 6197829-9 (Version None)
Quarter: 2009Q2

REPORT INFORMATION
  Report Type: 
  Country: None (occurrence: None)
  Receive Date: 20090521
  Receipt Date: 20090514
  Transmission Date: 20091009
  Serious: Yes (Other)
  Sender: FDA-Public Use
  Company Number: US-PFIZER INC-2006044346

PATIENT
  Sex: Female
  Weight: 70 kg

DRUGS (9)
  1. MEDROXYPROGESTERONE AND MEDROXYPROGESTERONE ACETATE [Suspect]
     Indication: HORMONE REPLACEMENT THERAPY
     Dosage: UNK
     Route: 048
     Dates: start: 19950828, end: 19970101
  2. PREMARIN [Suspect]
     Indication: HORMONE REPLACEMENT THERAPY
     Dosage: 0.625 MG, UNK
     Route: 065
     Dates: start: 19950504, end: 19970201
  3. PREMPRO [Suspect]
     Indication: HORMONE REPLACEMENT THERAPY
     Dosage: 0.625/2.5MG
     Route: 065
     Dates: start: 19970204, end: 20020507
  4. CYCRIN [Suspect]
     Indication: HORMONE REPLACEMENT THERAPY
     Dosage: 10 MG, UNK
     Route: 065
     Dates: start: 19950504, end: 19950801
  5. CYCRIN [Suspect]
     Dosage: 10 MG, UNK
     Dates: start: 19961219
  6. TIAZAC [Concomitant]
     Indication: HYPERTENSION
     Dosage: UNK
     Dates: start: 20010206, end: 20011201
  7. HYDROCHLOROTHIAZIDE [Concomitant]
     Indication: HYPERTENSION
     Dosage: UNK
     Dates: start: 20011201, end: 20020401
  8. LOTREL [Concomitant]
     Indication: HYPERTENSION
     Dosage: UNK
     Dates: start: 20020131, end: 20020501
  9. ACETYLSALICYLIC ACID [Concomitant]

REACTIONS (1)
  - BREAST CANCER FEMALE [None]
